FAERS Safety Report 20591945 (Version 1)
Quarter: 2022Q1

REPORT INFORMATION
  Report Type: Spontaneous
  Country: GR (occurrence: GR)
  Receive Date: 20220314
  Receipt Date: 20220314
  Transmission Date: 20220423
  Serious: Yes (Death)
  Sender: FDA-Public Use
  Company Number: GR-CELGENE-GRC-20220303577

PATIENT
  Age: 43 Year
  Sex: Male
  Weight: 77 kg

DRUGS (6)
  1. REBLOZYL [Suspect]
     Active Substance: LUSPATERCEPT-AAMT
     Indication: Thalassaemia beta
     Dosage: 1.25 MILLIGRAM/KILOGRAM
     Route: 058
     Dates: start: 20210705, end: 20211122
  2. EXJADE [Concomitant]
     Active Substance: DEFERASIROX
     Indication: Haemosiderosis
     Dosage: 7 MILLIGRAM/KILOGRAM
     Route: 030
     Dates: start: 20181024, end: 20211202
  3. GLUCOPHAGE [Concomitant]
     Active Substance: METFORMIN HYDROCHLORIDE
     Indication: Insulin resistance
     Route: 030
     Dates: start: 20180101, end: 20211228
  4. PROLIA [Concomitant]
     Active Substance: DENOSUMAB
     Indication: Osteoporosis
     Route: 030
     Dates: start: 20181024, end: 20211228
  5. ONEALFA [Concomitant]
     Active Substance: ALFACALCIDOL
     Indication: Osteoporosis
     Dosage: 1 MICROGRAM
     Route: 030
     Dates: start: 20160101, end: 20211228
  6. DESFERAL [Concomitant]
     Active Substance: DEFEROXAMINE MESYLATE
     Indication: Haemosiderosis
     Dosage: 39 MILLIGRAM/KILOGRAM
     Route: 030
     Dates: start: 20160912, end: 20211202

REACTIONS (1)
  - Death [Fatal]

NARRATIVE: CASE EVENT DATE: 20211228
